FAERS Safety Report 6523739-0 (Version None)
Quarter: 2009Q4

REPORT INFORMATION
  Report Type: 
  Country: None (occurrence: None)
  Receive Date: 20091231
  Receipt Date: 20091222
  Transmission Date: 20100525
  Serious: Yes (Death, Hospitalization)
  Sender: FDA-Public Use
  Company Number: CA-JNJFOC-20091206961

PATIENT
  Age: 57 Year
  Sex: Male
  Weight: 80 kg

DRUGS (9)
  1. REMICADE [Suspect]
     Route: 042
  2. REMICADE [Suspect]
     Route: 042
  3. REMICADE [Suspect]
     Route: 042
  4. REMICADE [Suspect]
     Indication: PSORIATIC ARTHROPATHY
     Route: 042
  5. METHOTREXATE [Concomitant]
     Route: 048
  6. FOLIC ACID [Concomitant]
     Route: 048
  7. ISONIAZID [Concomitant]
     Route: 048
  8. VITAMIN B6 [Concomitant]
     Route: 048
  9. DERMOVATE [Concomitant]
     Route: 061

REACTIONS (1)
  - THALAMUS HAEMORRHAGE [None]
